FAERS Safety Report 8247411-4 (Version None)
Quarter: 2012Q1

REPORT INFORMATION
  Report Type: 
  Country: None (occurrence: None)
  Receive Date: 20120330
  Receipt Date: 20120323
  Transmission Date: 20120608
  Serious: Yes (Other)
  Sender: FDA-Public Use
  Company Number: US-ABBOTT-12P-163-0919199-00

PATIENT
  Sex: Female

DRUGS (2)
  1. LUPRON DEPOT [Suspect]
  2. LUPRON DEPOT [Suspect]
     Indication: PRODUCT USED FOR UNKNOWN INDICATION

REACTIONS (7)
  - HOT FLUSH [None]
  - WEIGHT DECREASED [None]
  - BACK PAIN [None]
  - ALOPECIA [None]
  - WEIGHT INCREASED [None]
  - FEELING ABNORMAL [None]
  - VOMITING [None]
